FAERS Safety Report 17255705 (Version 2)
Quarter: 2020Q1

REPORT INFORMATION
  Report Type: Spontaneous
  Country: DE (occurrence: DE)
  Receive Date: 20200110
  Receipt Date: 20200117
  Transmission Date: 20200409
  Serious: Yes (Hospitalization, Other)
  Sender: FDA-Public Use
  Company Number: DE-TEVA-2020-DE-1163325

PATIENT
  Age: 73 Year
  Sex: Male

DRUGS (2)
  1. CLONIDIN RETARD-RATIOPHARM 250 [Suspect]
     Active Substance: CLONIDINE HYDROCHLORIDE
     Indication: HYPERTENSION
     Dosage: 250 MICROGRAM DAILY;
     Route: 048
     Dates: start: 2019
  2. MARCUMAR [Interacting]
     Active Substance: PHENPROCOUMON
     Dosage: FOR YEARS
     Route: 048

REACTIONS (3)
  - Drug level abnormal [Recovered/Resolved]
  - Intestinal haemorrhage [Recovered/Resolved]
  - Drug interaction [Unknown]

NARRATIVE: CASE EVENT DATE: 2019
